FAERS Safety Report 7202839-6 (Version None)
Quarter: 2010Q4

REPORT INFORMATION
  Report Type: 
  Country: None (occurrence: None)
  Receive Date: 20101213
  Receipt Date: 20101129
  Transmission Date: 20110411
  Serious: Yes (Life-Threatening, Other)
  Sender: FDA-Public Use
  Company Number: 2009021269

PATIENT
  Age: 58 Year
  Sex: Female

DRUGS (1)
  1. HUMATE-P [Suspect]
     Dosage: 2000 IU, 2000 IU INTRAVENOUS
     Route: 042
     Dates: start: 20091009, end: 20091009

REACTIONS (4)
  - ATELECTASIS [None]
  - CYANOSIS [None]
  - LUNG INFILTRATION [None]
  - SOMNOLENCE [None]
